FAERS Safety Report 10386475 (Version 3)
Quarter: 2014Q4

REPORT INFORMATION
  Report Type: Spontaneous
  Country: US (occurrence: US)
  Receive Date: 20140815
  Receipt Date: 20141107
  Transmission Date: 20150528
  Serious: Yes (Hospitalization)
  Sender: FDA-Public Use
  Company Number: US-UNITED THERAPEUTICS-UNT-2014-005260

PATIENT
  Age: 55 Year
  Sex: Female
  Weight: 94.78 kg

DRUGS (3)
  1. ADCIRCA [Concomitant]
     Active Substance: TADALAFIL
     Indication: PRODUCT USED FOR UNKNOWN INDICATION
     Route: 065
  2. REMODULIN [Suspect]
     Active Substance: TREPROSTINIL
     Indication: PULMONARY ARTERIAL HYPERTENSION
     Dosage: 0.135 ?G/KG, CONTINUING
     Route: 041
     Dates: start: 20060807
  3. REMODULIN [Suspect]
     Active Substance: TREPROSTINIL
     Dosage: 0.135 ?G/KG, CONTINUING
     Route: 041
     Dates: start: 20120218

REACTIONS (2)
  - Haemorrhage [Unknown]
  - Stoma site haemorrhage [Unknown]

NARRATIVE: CASE EVENT DATE: 2014
